FAERS Safety Report 4889439-8 (Version None)
Quarter: 2006Q1

REPORT INFORMATION
  Report Type: 
  Country: None (occurrence: None)
  Receive Date: 20060120
  Receipt Date: 20060111
  Transmission Date: 20060701
  Serious: Yes (Hospitalization, Other)
  Sender: FDA-Public Use
  Company Number: 2006007872

PATIENT
  Sex: Male

DRUGS (9)
  1. NITROSTAT [Suspect]
     Indication: ILL-DEFINED DISORDER
     Dates: start: 20040101
  2. COREG [Concomitant]
  3. FISH OIL (FISH OIL) [Concomitant]
  4. SPIRONOLACTONE [Concomitant]
  5. ZOCOR [Concomitant]
  6. DIOVAN [Concomitant]
  7. PACERONE [Concomitant]
  8. COUMADIN [Concomitant]
  9. HUMULIN (INSULIN HUMAN, INSULIN ISOPHANE, HUMAN BIOSYNTHETIC) [Concomitant]

REACTIONS (1)
  - CARDIAC FAILURE [None]
